FAERS Safety Report 25554136 (Version 1)
Quarter: 2025Q3

REPORT INFORMATION
  Report Type: Spontaneous
  Country: MX (occurrence: None)
  Receive Date: 20250714
  Receipt Date: 20250714
  Transmission Date: 20251020
  Serious: Yes (Other)
  Sender: FDA-CTU
  Company Number: None

PATIENT
  Age: 31 Year
  Sex: Female
  Weight: 60 kg

DRUGS (6)
  1. FOSFOMYCIN TROMETHAMINE [Suspect]
     Active Substance: FOSFOMYCIN TROMETHAMINE
     Indication: Urinary tract infection
     Dosage: OTHER QUANTITY : 1 PATCH(ES);?FREQUENCY : DAILY;?
     Route: 048
     Dates: start: 20250709, end: 20250709
  2. ALBUTEROL [Concomitant]
     Active Substance: ALBUTEROL
  3. Fremalt [Concomitant]
  4. OMEGA 3 [Concomitant]
     Active Substance: CAPSAICIN
  5. Rhodiola ros?cea [Concomitant]
  6. VITAMIN D [Concomitant]
     Active Substance: VITAMIN D NOS

REACTIONS (2)
  - Hypersensitivity [None]
  - Vaginal infection [None]

NARRATIVE: CASE EVENT DATE: 20250710
